FAERS Safety Report 4460756-9 (Version None)
Quarter: 2004Q3

REPORT INFORMATION
  Report Type: 
  Country: None (occurrence: None)
  Receive Date: 20040928
  Receipt Date: 20040729
  Transmission Date: 20050211
  Serious: Yes (Hospitalization)
  Sender: FDA-Public Use
  Company Number: US-GLAXOSMITHKLINE-A0520280A

PATIENT
  Age: 71 Year
  Sex: Female

DRUGS (7)
  1. ADVAIR DISKUS 100/50 [Suspect]
     Route: 055
     Dates: start: 20040508
  2. VITAMIN B COMPLEX CAP [Concomitant]
  3. ALBUTEROL SULFATE [Concomitant]
  4. DILTIAZEM [Concomitant]
  5. HYDROCHLOROTHIAZIDE TRIAMTERENE [Concomitant]
  6. LORAZEPAM [Concomitant]
  7. SYNTHROID [Concomitant]

REACTIONS (3)
  - CHRONIC OBSTRUCTIVE AIRWAYS DISEASE EXACERBATED [None]
  - NIGHT SWEATS [None]
  - RASH [None]
